FAERS Safety Report 4626592-5 (Version None)
Quarter: 2005Q1

REPORT INFORMATION
  Report Type: 
  Country: None (occurrence: None)
  Receive Date: 20050330
  Receipt Date: 20050317
  Transmission Date: 20050727
  Serious: Yes (Hospitalization)
  Sender: FDA-Public Use
  Company Number: 2005011218

PATIENT
  Age: 37 Year
  Sex: Male
  Weight: 106.7 kg

DRUGS (3)
  1. ROGAINE [Suspect]
     Indication: ALOPECIA
     Dosage: ONCE DAILY, TOPICAL
     Route: 061
     Dates: start: 20040901, end: 20050106
  2. LEVOFLOXACIN [Suspect]
     Indication: PNEUMONIA
     Dosage: 750 MG DAILY, ORAL
     Route: 048
     Dates: start: 20050103, end: 20050105
  3. ASPIRIN [Concomitant]

REACTIONS (9)
  - CHEST DISCOMFORT [None]
  - ELECTROCARDIOGRAM ST SEGMENT ELEVATION [None]
  - GENERAL PHYSICAL HEALTH DETERIORATION [None]
  - IMMUNOLOGY TEST ABNORMAL [None]
  - MUSCULOSKELETAL DISCOMFORT [None]
  - PERICARDIAL EFFUSION [None]
  - PERICARDIAL HAEMORRHAGE [None]
  - PERICARDITIS [None]
  - PNEUMONIA [None]
